FAERS Safety Report 21376217 (Version 1)
Quarter: 2022Q3

REPORT INFORMATION
  Report Type: Spontaneous
  Country: US (occurrence: None)
  Receive Date: 20220926
  Receipt Date: 20220926
  Transmission Date: 20221027
  Serious: No
  Sender: FDA-Public Use
  Company Number: 2022A321905

PATIENT
  Sex: Female
  Weight: 43.1 kg

DRUGS (3)
  1. EVUSHELD [Suspect]
     Active Substance: CILGAVIMAB\TIXAGEVIMAB
     Indication: Immunodeficiency
     Dosage: 150.0MG UNKNOWN
     Route: 030
     Dates: start: 202201
  2. EVUSHELD [Suspect]
     Active Substance: CILGAVIMAB\TIXAGEVIMAB
     Indication: Immunodeficiency
     Dosage: 150.0MG UNKNOWN
     Route: 030
     Dates: start: 202203
  3. EVUSHELD [Suspect]
     Active Substance: CILGAVIMAB\TIXAGEVIMAB
     Indication: Immunodeficiency
     Dosage: 300.0MG UNKNOWN
     Route: 030
     Dates: start: 20220916

REACTIONS (2)
  - Extra dose administered [Unknown]
  - Antibody test abnormal [Unknown]
